FAERS Safety Report 4717624-4 (Version None)
Quarter: 2005Q3

REPORT INFORMATION
  Report Type: 
  Country: None (occurrence: None)
  Receive Date: 20050712
  Receipt Date: 20050318
  Transmission Date: 20060218
  Serious: No
  Sender: FDA-Public Use
  Company Number: 2005S1000047

PATIENT
  Age: 48 Year
  Sex: Male
  Weight: 118 kg

DRUGS (12)
  1. CUBICIN [Suspect]
     Indication: STAPHYLOCOCCAL BACTERAEMIA
     Dosage: 600 MG; Q24H; IV
     Route: 042
     Dates: start: 20050310
  2. CEFTRIAXONE [Concomitant]
  3. VANCOMYCIN [Concomitant]
  4. RIFAXIMIN [Concomitant]
  5. LEVOFLOXACIN [Concomitant]
  6. CEFTAZIDIME [Concomitant]
  7. MEROPENEM [Concomitant]
  8. FLUCONAZOLE [Concomitant]
  9. METRONIDAZOLE [Concomitant]
  10. TRAZODONE HCL [Concomitant]
  11. PANTOPRAZOLE [Concomitant]
  12. BACTRIM [Concomitant]

REACTIONS (4)
  - LEUKOPENIA [None]
  - THROMBOCYTOPENIA [None]
  - URINARY TRACT INFECTION BACTERIAL [None]
  - URINARY TRACT INFECTION FUNGAL [None]
